FAERS Safety Report 9093979 (Version 4)
Quarter: 2014Q3

REPORT INFORMATION
  Report Type: Spontaneous
  Country: US (occurrence: US)
  Receive Date: 20130219
  Receipt Date: 20140717
  Transmission Date: 20150326
  Serious: Yes (Hospitalization, Disabling, Other)
  Sender: FDA-Public Use
  Company Number: US-009507513-1302USA006708

PATIENT
  Sex: Female
  Weight: 90.7 kg

DRUGS (2)
  1. LEVOTHYROXINE SODIUM. [Concomitant]
     Active Substance: LEVOTHYROXINE SODIUM
     Indication: HYPOTHYROIDISM
  2. NUVARING [Suspect]
     Active Substance: ETHINYL ESTRADIOL\ETONOGESTREL
     Indication: CONTRACEPTION
     Dosage: UNK
     Route: 067
     Dates: start: 20070205, end: 200901

REACTIONS (23)
  - Abortion spontaneous [Recovered/Resolved]
  - Constipation [Unknown]
  - Glaucoma [Unknown]
  - Laryngitis [Unknown]
  - Somnolence [Unknown]
  - Dysphagia [Unknown]
  - Weight decreased [Unknown]
  - Granuloma [Unknown]
  - Myasthenia gravis [Unknown]
  - Maternal exposure before pregnancy [Recovered/Resolved]
  - Migraine [Unknown]
  - Cerebrovascular accident [Recovering/Resolving]
  - Tongue blistering [Unknown]
  - Painful defaecation [Unknown]
  - Back pain [Unknown]
  - Intervertebral disc protrusion [Unknown]
  - Personality change [Unknown]
  - Choking [Unknown]
  - Reflux laryngitis [Unknown]
  - Laryngospasm [Unknown]
  - Fatigue [Unknown]
  - Mental disorder [Unknown]
  - Anxiety [Unknown]

NARRATIVE: CASE EVENT DATE: 20070208
